FAERS Safety Report 4904530-5 (Version None)
Quarter: 2006Q1

REPORT INFORMATION
  Report Type: 
  Country: None (occurrence: None)
  Receive Date: 20060208
  Receipt Date: 20050914
  Transmission Date: 20060701
  Serious: No
  Sender: FDA-Public Use
  Company Number: US-GLAXOSMITHKLINE-A0574243A

PATIENT
  Age: 17 Year
  Sex: Female

DRUGS (4)
  1. PAROXETINE HCL [Suspect]
     Dosage: 40MG PER DAY
     Route: 048
     Dates: start: 20050101
  2. BUSPAR [Concomitant]
  3. VITAMINS [Concomitant]
  4. BIRTH CONTROL PILL [Concomitant]

REACTIONS (2)
  - ANXIETY [None]
  - IRRITABILITY [None]
